FAERS Safety Report 16900607 (Version 1)
Quarter: 2019Q4

REPORT INFORMATION
  Report Type: Spontaneous
  Country: US (occurrence: US)
  Receive Date: 20190815
  Receipt Date: 20190815
  Transmission Date: 20200122
  Serious: Yes (Hospitalization)
  Sender: FDA-Public Use
  Company Number: None

PATIENT
  Age: 73 Year
  Sex: Female

DRUGS (14)
  1. HYDROCORTISONE TOP CREAM [Concomitant]
  2. METFORMIN [Concomitant]
     Active Substance: METFORMIN HYDROCHLORIDE
  3. TROSPIUM [Concomitant]
     Active Substance: TROSPIUM
  4. LOSARTAN. [Concomitant]
     Active Substance: LOSARTAN
  5. ADEMPAS [Suspect]
     Active Substance: RIOCIGUAT
     Indication: PULMONARY HYPERTENSION
     Route: 048
     Dates: start: 201803
  6. FAMOTIDINE. [Concomitant]
     Active Substance: FAMOTIDINE
  7. TRINO-SAN VAG GEL [Concomitant]
  8. CICLOPIROX TOP CREAM [Concomitant]
  9. WARFARIN [Concomitant]
     Active Substance: WARFARIN
  10. PANTOPRAZOLE [Concomitant]
     Active Substance: PANTOPRAZOLE
  11. FERROUS SULFATE. [Concomitant]
     Active Substance: FERROUS SULFATE
  12. LEVOTHYROXINE. [Concomitant]
     Active Substance: LEVOTHYROXINE
  13. ATORVASTATIN [Concomitant]
     Active Substance: ATORVASTATIN
  14. CLINDAMYCIN. [Concomitant]
     Active Substance: CLINDAMYCIN

REACTIONS (6)
  - Faeces discoloured [None]
  - Haemoglobin decreased [None]
  - Anticoagulation drug level above therapeutic [None]
  - Fatigue [None]
  - Dyspnoea [None]
  - Lethargy [None]

NARRATIVE: CASE EVENT DATE: 20190716
